FAERS Safety Report 8044796-9 (Version None)
Quarter: 2012Q1

REPORT INFORMATION
  Report Type: 
  Country: None (occurrence: None)
  Receive Date: 20120113
  Receipt Date: 20120109
  Transmission Date: 20120608
  Serious: Yes (Other)
  Sender: FDA-Public Use
  Company Number: US-PFIZER INC-2010134738

PATIENT
  Sex: Male

DRUGS (7)
  1. SUTENT [Suspect]
     Dosage: 25 MG, CYCLIC
     Dates: start: 20110907, end: 20111001
  2. SUTENT [Suspect]
     Dosage: 37.5 MG, 1X/DAY, X 28 DAYS EVERY 42 DAYS
     Dates: start: 20101128
  3. SUTENT [Suspect]
     Dosage: 37.5 MG, 1X/DAY, X 28 DAYS EVERY 42 DAYS
     Dates: start: 20110112, end: 20110125
  4. SUTENT [Suspect]
     Indication: METASTATIC RENAL CELL CARCINOMA
     Dosage: 50 MG, 1X/DAY, X 28 DAYS EVERY 42 DAYS
     Dates: start: 20100907, end: 20100928
  5. SUTENT [Suspect]
     Dosage: 25 MG, 1X/DAY, FOR 28 DAYS EVERY 42 DAYS
     Dates: start: 20101021, end: 20101110
  6. SUTENT [Suspect]
     Dosage: 37.5 MG, 1X/DAY
     Dates: start: 20101111
  7. SUTENT [Suspect]
     Dosage: 37.5 MG, UNK
     Dates: start: 20110126, end: 20110209

REACTIONS (19)
  - HEADACHE [None]
  - FATIGUE [None]
  - METASTATIC RENAL CELL CARCINOMA [None]
  - RENAL IMPAIRMENT [None]
  - PLATELET COUNT DECREASED [None]
  - NASOPHARYNGITIS [None]
  - BRONCHITIS [None]
  - DIZZINESS [None]
  - PYREXIA [None]
  - WHITE BLOOD CELL COUNT DECREASED [None]
  - BACK PAIN [None]
  - DECREASED APPETITE [None]
  - GOUT [None]
  - COUGH [None]
  - RED BLOOD CELL COUNT DECREASED [None]
  - RHINORRHOEA [None]
  - DISEASE PROGRESSION [None]
  - VERTIGO [None]
  - DYSGEUSIA [None]
